FAERS Safety Report 6662623-9 (Version None)
Quarter: 2010Q1

REPORT INFORMATION
  Report Type: 
  Country: None (occurrence: None)
  Receive Date: 20100329
  Receipt Date: 20100315
  Transmission Date: 20100710
  Serious: Yes (Hospitalization)
  Sender: FDA-Public Use
  Company Number: 230215K09CAN

PATIENT
  Age: 51 Year
  Sex: Female

DRUGS (6)
  1. REBIF [Suspect]
     Indication: RELAPSING-REMITTING MULTIPLE SCLEROSIS
     Dosage: 44 MCG, 3 IN 1 WEEKS
     Dates: start: 20050927
  2. SYNTHROID [Concomitant]
  3. CYTOMEL [Concomitant]
  4. DIAZIDE (GLICALIZIDE) [Concomitant]
  5. VESICARE [Concomitant]
  6. ATAVAN [ATIVAN] (LORAZEPAM) [Concomitant]

REACTIONS (14)
  - ABDOMINAL DISTENSION [None]
  - CHOLECYSTECTOMY [None]
  - CONDITION AGGRAVATED [None]
  - FATIGUE [None]
  - GASTROINTESTINAL INJURY [None]
  - IATROGENIC INJURY [None]
  - MULTIPLE SCLEROSIS [None]
  - NAUSEA [None]
  - PANCREATITIS [None]
  - PROCEDURAL COMPLICATION [None]
  - SINUSITIS [None]
  - STRESS AT WORK [None]
  - THERMAL BURN [None]
  - URINE ODOUR ABNORMAL [None]
